FAERS Safety Report 4949022-2 (Version None)
Quarter: 2006Q1

REPORT INFORMATION
  Report Type: 
  Country: None (occurrence: None)
  Receive Date: 20060321
  Receipt Date: 20050412
  Transmission Date: 20060701
  Serious: Yes (Other)
  Sender: FDA-Public Use
  Company Number: US-GLAXOSMITHKLINE-A0553777A

PATIENT
  Age: 59 Year
  Sex: Female
  Weight: 63.2 kg

DRUGS (16)
  1. WELLBUTRIN XL [Suspect]
     Indication: DEPRESSION
     Route: 048
     Dates: start: 20050201, end: 20050404
  2. BENICAR [Concomitant]
  3. SKELAXIN [Concomitant]
  4. PROTONIX [Concomitant]
  5. POTASSIUM SUPPLEMENT [Concomitant]
  6. CELEBREX [Concomitant]
  7. VICODIN [Concomitant]
  8. MAXALT [Concomitant]
  9. PREDNISOLONE ACETATE OPHTHALMIC SUSPENSION/DROPS [Concomitant]
  10. BETANOL 0.3% [Concomitant]
  11. ALPHAGAN [Concomitant]
  12. DITROPAN [Concomitant]
  13. BENADRYL [Concomitant]
  14. ZYRTEC [Concomitant]
  15. GEROVIT (MULTIVITAMIN) [Concomitant]
  16. TYLENOL (CAPLET) [Concomitant]

REACTIONS (14)
  - ATRIAL FLUTTER [None]
  - EYE PAIN [None]
  - HEADACHE [None]
  - HEART RATE INCREASED [None]
  - HYPERHIDROSIS [None]
  - HYPERTENSION [None]
  - IRITIS [None]
  - NAUSEA [None]
  - NEURALGIA [None]
  - PHOTOPSIA [None]
  - RED BLOOD CELL COUNT DECREASED [None]
  - VITREOUS FLOATERS [None]
  - VOMITING [None]
  - WHITE BLOOD CELL COUNT DECREASED [None]
